FAERS Safety Report 5448129-3 (Version None)
Quarter: 2007Q3

REPORT INFORMATION
  Report Type: 
  Country: None (occurrence: None)
  Receive Date: 20070803
  Receipt Date: 20070606
  Transmission Date: 20080115
  Serious: Yes (Other)
  Sender: FDA-Public Use
  Company Number: 200711756BWH

PATIENT
  Age: 84 Year
  Sex: Female

DRUGS (7)
  1. NEXAVAR [Suspect]
     Indication: RENAL CELL CARCINOMA STAGE UNSPECIFIED
     Dosage: 200 MG,TIW,ORAL; 200 MG,TOTAL DAILY,ORAL; 200 MG,QD,ORAL
     Route: 048
     Dates: start: 20070321, end: 20070327
  2. NEXAVAR [Suspect]
     Indication: RENAL CELL CARCINOMA STAGE UNSPECIFIED
     Dosage: 200 MG,TIW,ORAL; 200 MG,TOTAL DAILY,ORAL; 200 MG,QD,ORAL
     Route: 048
     Dates: start: 20070328, end: 20070404
  3. NEXAVAR [Suspect]
     Indication: RENAL CELL CARCINOMA STAGE UNSPECIFIED
     Dosage: 200 MG,TIW,ORAL; 200 MG,TOTAL DAILY,ORAL; 200 MG,QD,ORAL
     Route: 048
     Dates: start: 20070405
  4. CEPHALEXIN [Concomitant]
  5. FORTEO [Concomitant]
  6. PLAVIX [Concomitant]
  7. TOPROL-XL [Concomitant]

REACTIONS (7)
  - BALANCE DISORDER [None]
  - DIARRHOEA [None]
  - DIZZINESS [None]
  - DYSPNOEA EXERTIONAL [None]
  - FATIGUE [None]
  - MUSCULAR WEAKNESS [None]
  - VISUAL DISTURBANCE [None]
